FAERS Safety Report 21121703 (Version 2)
Quarter: 2022Q3

REPORT INFORMATION
  Report Type: Spontaneous
  Country: US (occurrence: US)
  Receive Date: 20220722
  Receipt Date: 20220805
  Transmission Date: 20221026
  Serious: Yes (Other)
  Sender: FDA-Public Use
  Company Number: US-009507513-2207USA005773

PATIENT
  Age: 71 Year
  Sex: Female

DRUGS (3)
  1. JANUVIA [Suspect]
     Active Substance: SITAGLIPTIN PHOSPHATE
     Indication: Diabetes mellitus
     Dosage: UNK
     Route: 048
  2. JANUMET [Suspect]
     Active Substance: METFORMIN HYDROCHLORIDE\SITAGLIPTIN PHOSPHATE
     Dosage: UNK
     Route: 048
     Dates: end: 20220713
  3. INSULIN NOS [Suspect]
     Active Substance: INSULIN NOS
     Dosage: UNK
     Dates: end: 20220713

REACTIONS (5)
  - Pancreatic carcinoma [Recovering/Resolving]
  - Weight decreased [Unknown]
  - Blood glucose increased [Unknown]
  - Diarrhoea [Unknown]
  - Product dose omission issue [Unknown]

NARRATIVE: CASE EVENT DATE: 20210801
